FAERS Safety Report 8614920-5 (Version None)
Quarter: 2012Q3

REPORT INFORMATION
  Report Type: 
  Country: None (occurrence: None)
  Receive Date: 20120823
  Receipt Date: 20120820
  Transmission Date: 20120928
  Serious: Yes (Hospitalization)
  Sender: FDA-Public Use
  Company Number: FR-SANOFI-AVENTIS-2012SA059604

PATIENT
  Age: 69 Year
  Sex: Male

DRUGS (12)
  1. ASPIRIN [Concomitant]
     Route: 048
  2. LEVOFLOXACIN [Suspect]
     Route: 048
     Dates: start: 20120724, end: 20120727
  3. ATARAX [Concomitant]
     Dates: start: 20120723
  4. DILTIAZEM HCL [Concomitant]
     Route: 048
  5. PANTOPRAZOLE SODIUM [Concomitant]
  6. COLCHICINE [Concomitant]
  7. EZETIMIBE [Concomitant]
  8. RIFADIN [Suspect]
     Route: 048
     Dates: start: 20120724, end: 20120727
  9. TRAMADOL HCL [Concomitant]
  10. INDAPAMIDE [Concomitant]
  11. POLYETHYLENE GLYCOL [Concomitant]
  12. CEFTRIAXONE [Concomitant]
     Dates: start: 20120706, end: 20120723

REACTIONS (2)
  - CONFUSIONAL STATE [None]
  - HALLUCINATION [None]
